FAERS Safety Report 9773275 (Version 3)
Quarter: 2014Q1

REPORT INFORMATION
  Report Type: Spontaneous
  Country: CN (occurrence: CN)
  Receive Date: 20131219
  Receipt Date: 20140326
  Transmission Date: 20141002
  Serious: Yes (Other)
  Sender: FDA-Public Use
  Company Number: CN-GLAXOSMITHKLINE-B0954021A

PATIENT
  Age: 60 Year
  Sex: Female
  Weight: 51 kg

DRUGS (1)
  1. SERETIDE [Suspect]
     Indication: BRONCHITIS
     Dosage: 1PUFF PER DAY
     Route: 055
     Dates: start: 2013

REACTIONS (3)
  - Mastitis [Recovered/Resolved]
  - Blood glucose increased [Recovered/Resolved]
  - Arthralgia [Unknown]
